FAERS Safety Report 4853237-1 (Version None)
Quarter: 2005Q4

REPORT INFORMATION
  Report Type: 
  Country: None (occurrence: None)
  Receive Date: 20051213
  Receipt Date: 20051213
  Transmission Date: 20060501
  Serious: Yes (Other)
  Sender: FDA-Public Use
  Company Number: None

PATIENT
  Sex: Female
  Weight: 66.6788 kg

DRUGS (1)
  1. FEXOFENADINE HCL [Suspect]
     Indication: RHINITIS ALLERGIC
     Dosage: 180 MG ONE QD ORAL
     Route: 048
     Dates: start: 20051024

REACTIONS (3)
  - HAEMOPTYSIS [None]
  - LACRIMATION INCREASED [None]
  - NASAL CONGESTION [None]
